FAERS Safety Report 10150744 (Version 1)
Quarter: 2014Q2

REPORT INFORMATION
  Report Type: Spontaneous
  Country: US (occurrence: US)
  Receive Date: 20140502
  Receipt Date: 20140502
  Transmission Date: 20141212
  Serious: No
  Sender: FDA-Public Use
  Company Number: US-ASTRAZENECA-2013SE38082

PATIENT
  Age: 77 Year
  Sex: Female

DRUGS (4)
  1. PRILOSEC OTC [Suspect]
     Dosage: 1-2 TABLETS DAILY
     Route: 048
  2. ANTIHYPERTENSIVES [Concomitant]
  3. SYNTHROID [Concomitant]
  4. CRESTOR [Concomitant]

REACTIONS (2)
  - Dyspepsia [Recovered/Resolved]
  - Intentional product misuse [Unknown]
